FAERS Safety Report 17481022 (Version 2)
Quarter: 2020Q2

REPORT INFORMATION
  Report Type: Spontaneous
  Country: US (occurrence: US)
  Receive Date: 20200302
  Receipt Date: 20200407
  Transmission Date: 20200713
  Serious: Yes (Other)
  Sender: FDA-Public Use
  Company Number: US-TEVA-2020-US-1191364

PATIENT
  Age: 74 Year
  Sex: Female
  Weight: 72.57 kg

DRUGS (14)
  1. COPAXONE [Suspect]
     Active Substance: GLATIRAMER ACETATE
     Indication: MULTIPLE SCLEROSIS
     Dosage: 20 MILLIGRAM/MILLILITERS DAILY;
     Route: 065
     Dates: start: 2003
  2. ATORVASTATIN [Concomitant]
     Active Substance: ATORVASTATIN
     Route: 065
  3. COENZYME Q [Concomitant]
  4. TIMOLOL. [Concomitant]
     Active Substance: TIMOLOL
     Route: 065
  5. IBUPROFEN. [Concomitant]
     Active Substance: IBUPROFEN
  6. EPIPEN [Concomitant]
     Active Substance: EPINEPHRINE
     Route: 065
  7. COPAXONE [Suspect]
     Active Substance: GLATIRAMER ACETATE
     Route: 065
  8. VITAMINS [Concomitant]
     Active Substance: VITAMINS
     Route: 065
  9. NORVASC [Concomitant]
     Active Substance: AMLODIPINE BESYLATE
     Route: 065
  10. VITAMIN D [Concomitant]
     Active Substance: VITAMIN D NOS
  11. COPAXONE [Suspect]
     Active Substance: GLATIRAMER ACETATE
     Route: 065
  12. PSYLLIUM [Concomitant]
     Active Substance: PLANTAGO SEED
  13. LATANOPROST. [Concomitant]
     Active Substance: LATANOPROST
     Route: 065
  14. INDAPAMIDE. [Concomitant]
     Active Substance: INDAPAMIDE
     Route: 065

REACTIONS (8)
  - Pruritus [Unknown]
  - Scab [Unknown]
  - Rash papular [Unknown]
  - Squamous cell carcinoma [Unknown]
  - Large intestine polyp [Recovered/Resolved]
  - Skin disorder [Unknown]
  - Rash [Recovering/Resolving]
  - Joint injury [Unknown]

NARRATIVE: CASE EVENT DATE: 201905
